FAERS Safety Report 21552446 (Version 1)
Quarter: 2022Q4

REPORT INFORMATION
  Report Type: Report from Study
  Country: US (occurrence: US)
  Receive Date: 20221104
  Receipt Date: 20221104
  Transmission Date: 20230113
  Serious: No
  Sender: FDA-Public Use
  Company Number: US-ABBVIE-4187149

PATIENT
  Sex: Male

DRUGS (1)
  1. VENCLEXTA [Suspect]
     Active Substance: VENETOCLAX
     Indication: Acute myeloid leukaemia
     Route: 058
     Dates: start: 202210

REACTIONS (5)
  - Urinary retention [Unknown]
  - Constipation [Unknown]
  - Urinary incontinence [Unknown]
  - Platelet count increased [Unknown]
  - Oral herpes [Unknown]
